FAERS Safety Report 12924700 (Version 1)
Quarter: 2016Q4

REPORT INFORMATION
  Report Type: Spontaneous
  Country: US (occurrence: US)
  Receive Date: 20161108
  Receipt Date: 20161108
  Transmission Date: 20170207
  Serious: Yes (Other)
  Sender: FDA-Public Use
  Company Number: None

PATIENT
  Age: 41 Year
  Sex: Female
  Weight: 143.55 kg

DRUGS (2)
  1. OMEPERAZOLE 40MG CPDR [Suspect]
     Active Substance: OMEPRAZOLE
     Indication: GASTROOESOPHAGEAL REFLUX DISEASE
     Dosage: QUANTITY:1 CAPSULE(S); DAILY, ORAL?
     Route: 048
     Dates: start: 20161010, end: 20161030
  2. CO-Q 10 [Concomitant]

REACTIONS (7)
  - Blood pressure increased [None]
  - Dizziness [None]
  - Nausea [None]
  - Seizure [None]
  - Palpitations [None]
  - Malaise [None]
  - Headache [None]

NARRATIVE: CASE EVENT DATE: 20161031
